FAERS Safety Report 9467963 (Version 1)
Quarter: 2013Q3

REPORT INFORMATION
  Report Type: Spontaneous
  Country: US (occurrence: US)
  Receive Date: 20130821
  Receipt Date: 20130821
  Transmission Date: 20140515
  Serious: Yes (Other)
  Sender: FDA-Public Use
  Company Number: US-RANBAXY-2013US-72329

PATIENT
  Age: 45 Year
  Sex: Male

DRUGS (3)
  1. ZOLPIDEM [Suspect]
     Indication: MAJOR DEPRESSION
     Dosage: 10 MG NIGHTLY
     Route: 048
  2. PAROXETINE [Interacting]
     Indication: MAJOR DEPRESSION
     Dosage: 25 MG DAILY
     Route: 065
  3. PAROXETINE [Interacting]
     Dosage: 37.5 MG DAILY
     Route: 065

REACTIONS (4)
  - Major depression [Unknown]
  - Homicide [Unknown]
  - Drug interaction [Unknown]
  - Intentional overdose [Unknown]
